FAERS Safety Report 4567200-1 (Version None)
Quarter: 2005Q1

REPORT INFORMATION
  Report Type: 
  Country: None (occurrence: None)
  Receive Date: 20050127
  Receipt Date: 20050114
  Transmission Date: 20050727
  Serious: Yes (Other)
  Sender: FDA-Public Use
  Company Number: 2004087501

PATIENT
  Age: 20 Year
  Sex: Male
  Weight: 68.0396 kg

DRUGS (5)
  1. ZYRTEC [Suspect]
     Indication: URTICARIA
     Dosage: 10 MG
  2. BENADRYL [Suspect]
     Indication: URTICARIA
  3. VALPROATE SODIUM [Suspect]
     Indication: CONVULSION
     Dates: start: 20041001
  4. RIZATRIPTAM  BENZOATE [Concomitant]
  5. CANNABIS [Concomitant]

REACTIONS (17)
  - ALOPECIA [None]
  - ANXIETY [None]
  - BLOOD CREATININE INCREASED [None]
  - BODY TEMPERATURE INCREASED [None]
  - CONFUSIONAL STATE [None]
  - EXCORIATION [None]
  - FEELING ABNORMAL [None]
  - GRAND MAL CONVULSION [None]
  - HEADACHE [None]
  - INFECTIOUS MONONUCLEOSIS [None]
  - LEUKOCYTOSIS [None]
  - MENTAL STATUS CHANGES [None]
  - POSTICTAL STATE [None]
  - SYNCOPE [None]
  - TONGUE INJURY [None]
  - TREMOR [None]
  - URTICARIA [None]
